FAERS Safety Report 5636487-6 (Version None)
Quarter: 2008Q1

REPORT INFORMATION
  Report Type: 
  Country: None (occurrence: None)
  Receive Date: 20080225
  Receipt Date: 20080214
  Transmission Date: 20080703
  Serious: Yes (Hospitalization, Other)
  Sender: FDA-Public Use
  Company Number: US-ELI_LILLY_AND_COMPANY-US200802003411

PATIENT
  Sex: Male

DRUGS (6)
  1. ALIMTA [Suspect]
     Indication: NON-SMALL CELL LUNG CANCER
     Dosage: 500 MG/M2, OTHER
     Dates: start: 20061201, end: 20070101
  2. ALIMTA [Suspect]
     Dosage: 600 MG/M2, OTHER
     Dates: start: 20070101, end: 20071201
  3. ALIMTA [Suspect]
     Dosage: 500 MG/M2, OTHER
  4. CISPLATIN [Concomitant]
     Indication: NON-SMALL CELL LUNG CANCER
     Dates: start: 20061201, end: 20070101
  5. OXYCONTIN [Concomitant]
  6. KEPPRA [Concomitant]

REACTIONS (3)
  - CONFUSIONAL STATE [None]
  - HOSPITALISATION [None]
  - PYREXIA [None]
